FAERS Safety Report 5068723-1 (Version None)
Quarter: 2006Q3

REPORT INFORMATION
  Report Type: 
  Country: None (occurrence: None)
  Receive Date: 20060802
  Receipt Date: 20060301
  Transmission Date: 20061208
  Serious: No
  Sender: FDA-Public Use
  Company Number: US-BRISTOL-MYERS SQUIBB COMPANY-13299003

PATIENT
  Age: 67 Year
  Sex: Female
  Weight: 66 kg

DRUGS (3)
  1. COUMADIN [Suspect]
     Indication: CENTRAL VENOUS CATHETERISATION
     Dates: start: 20051015
  2. AVASTIN [Concomitant]
  3. HYZAAR [Concomitant]

REACTIONS (1)
  - URTICARIA [None]
